FAERS Safety Report 23794976 (Version 1)
Quarter: 2024Q2

REPORT INFORMATION
  Report Type: Spontaneous
  Country: FR (occurrence: FR)
  Receive Date: 20240429
  Receipt Date: 20240429
  Transmission Date: 20240716
  Serious: Yes (Hospitalization)
  Sender: FDA-Public Use
  Company Number: FR-ARBOR PHARMACEUTICALS, LLC-FR-2024AZR000471

PATIENT
  Age: 27 Year
  Sex: Female
  Weight: 43 kg

DRUGS (6)
  1. TRIPTODUR [Suspect]
     Active Substance: TRIPTORELIN
     Indication: Ovulation induction
     Dosage: 2 DOSAGE FORM, 1
     Route: 058
     Dates: start: 20230116, end: 20230116
  2. TRIPTODUR [Suspect]
     Active Substance: TRIPTORELIN
  3. TRIPTODUR [Suspect]
     Active Substance: TRIPTORELIN
  4. GONAL-F [Suspect]
     Active Substance: FOLLITROPIN
     Indication: Controlled ovarian stimulation
     Dosage: 125 INTERNATIONAL UNIT(S), IN 1 DAY
     Route: 058
     Dates: start: 20230108, end: 20230115
  5. GANIRELIX ACETATE [Suspect]
     Active Substance: GANIRELIX ACETATE
     Indication: Controlled ovarian stimulation
     Dosage: 1 DOSAGE FORM
     Route: 065
     Dates: start: 20230116, end: 20230116
  6. GANIRELIX ACETATE [Concomitant]
     Active Substance: GANIRELIX ACETATE
     Indication: Controlled ovarian stimulation
     Dosage: 1 DOSAGE FORM
     Route: 058
     Dates: start: 20230113, end: 20230115

REACTIONS (3)
  - Ovarian hyperstimulation syndrome [Recovered/Resolved]
  - Abdominal pain [Recovered/Resolved]
  - Vomiting [Recovered/Resolved]

NARRATIVE: CASE EVENT DATE: 20230117
